FAERS Safety Report 8329168-1 (Version None)
Quarter: 2012Q2

REPORT INFORMATION
  Report Type: 
  Country: None (occurrence: None)
  Receive Date: 20120502
  Receipt Date: 20101027
  Transmission Date: 20120825
  Serious: No
  Sender: FDA-Public Use
  Company Number: US-TEVA-2010005638

PATIENT
  Sex: Female
  Weight: 47.216 kg

DRUGS (2)
  1. NUVIGIL [Suspect]
     Indication: SLEEP DISORDER
     Dosage: 150 MILLIGRAM;
     Route: 048
     Dates: start: 20100801
  2. LEXAPRO [Concomitant]
     Dates: start: 20100101

REACTIONS (1)
  - ABDOMINAL PAIN UPPER [None]
